FAERS Safety Report 25687377 (Version 1)
Quarter: 2025Q3

REPORT INFORMATION
  Report Type: Spontaneous
  Country: US (occurrence: US)
  Receive Date: 20250816
  Receipt Date: 20250816
  Transmission Date: 20251020
  Serious: No
  Sender: SANOFI AVENTIS
  Company Number: US-SA-2022SA097943

PATIENT
  Age: 36 Year
  Sex: Female
  Weight: 83.91 kg

DRUGS (4)
  1. DUPIXENT [Suspect]
     Active Substance: DUPILUMAB
     Indication: Dermatitis atopic
     Route: 058
     Dates: start: 20210918, end: 20210918
  2. DUPIXENT [Suspect]
     Active Substance: DUPILUMAB
     Dosage: 300 MG, QOW
     Route: 058
     Dates: start: 20250319
  3. LEVLEN [Concomitant]
     Active Substance: ETHINYL ESTRADIOL\LEVONORGESTREL
  4. SYSTANE (HYPROMELLOSE 2910 (4000 MPA.S)) [Concomitant]
     Active Substance: HYPROMELLOSE 2910 (4000 MPA.S)

REACTIONS (4)
  - Headache [Unknown]
  - Dizziness [Unknown]
  - Urinary tract infection [Unknown]
  - Dry eye [Unknown]
